FAERS Safety Report 23941034 (Version 3)
Quarter: 2024Q2

REPORT INFORMATION
  Report Type: Report from Study
  Country: US (occurrence: US)
  Receive Date: 20240605
  Receipt Date: 20240610
  Transmission Date: 20240716
  Serious: Yes (Life-Threatening, Hospitalization, Other)
  Sender: FDA-Public Use
  Company Number: US-PFIZER INC-PV202400073312

PATIENT
  Age: 29 Year
  Sex: Male

DRUGS (3)
  1. KETAMINE HYDROCHLORIDE [Suspect]
     Active Substance: KETAMINE HYDROCHLORIDE
     Indication: Endotracheal intubation
     Dosage: 2 MG/KG
     Route: 042
  2. KETAMINE HYDROCHLORIDE [Suspect]
     Active Substance: KETAMINE HYDROCHLORIDE
     Dosage: 0.4 MG/KG
     Route: 042
  3. ROCURONIUM [Concomitant]
     Active Substance: ROCURONIUM BROMIDE
     Indication: Endotracheal intubation
     Dosage: UNK

REACTIONS (3)
  - Oxygen saturation decreased [Recovered/Resolved]
  - Bradycardia [Recovered/Resolved]
  - Laryngospasm [Recovered/Resolved]
